FAERS Safety Report 7622722-1 (Version None)
Quarter: 2011Q3

REPORT INFORMATION
  Report Type: 
  Country: None (occurrence: None)
  Receive Date: 20110701
  Receipt Date: 20100817
  Transmission Date: 20111222
  Serious: Yes (Hospitalization)
  Sender: FDA-Public Use
  Company Number: 7014581

PATIENT
  Age: 54 Year
  Sex: Male

DRUGS (6)
  1. ALLOPURINOL [Concomitant]
  2. METOPROLOL SUCCINATE [Concomitant]
  3. COZAAR [Concomitant]
  4. ASPIRIN [Concomitant]
  5. REBIF [Suspect]
     Indication: MULTIPLE SCLEROSIS
     Dosage: 44 MCG, 3 IN 1 WK, SUBCUTANEOUS
     Route: 058
     Dates: start: 20030428
  6. LIPITOR [Concomitant]

REACTIONS (1)
  - INJECTION SITE CELLULITIS [None]
